FAERS Safety Report 14475806 (Version 1)
Quarter: 2018Q1

REPORT INFORMATION
  Report Type: Not Available
  Country: US (occurrence: US)
  Receive Date: 20180201
  Receipt Date: 20180201
  Transmission Date: 20180509
  Serious: Yes (Other)
  Sender: FDA-Public Use
  Company Number: US-NEUROCRINE BIOSCIENCES INC.-2018NBI00292

PATIENT
  Sex: Female

DRUGS (23)
  1. CHLORPROMAZINE. [Concomitant]
     Active Substance: CHLORPROMAZINE
  2. DICLOFENAC [Concomitant]
     Active Substance: DICLOFENAC
  3. NEURONTIN [Concomitant]
     Active Substance: GABAPENTIN
  4. PRAVACHOL [Concomitant]
     Active Substance: PRAVASTATIN SODIUM
  5. CARVEDILOL. [Concomitant]
     Active Substance: CARVEDILOL
  6. DULOXETINE. [Concomitant]
     Active Substance: DULOXETINE
  7. INGREZZA [Suspect]
     Active Substance: VALBENAZINE
     Route: 048
     Dates: start: 20171223
  8. ALLOPURINOL. [Concomitant]
     Active Substance: ALLOPURINOL
  9. FENOFIBRATE. [Concomitant]
     Active Substance: FENOFIBRATE
  10. KEPPRA [Concomitant]
     Active Substance: LEVETIRACETAM
  11. POTASSIUM [Concomitant]
     Active Substance: POTASSIUM
  12. NEXIUM [Concomitant]
     Active Substance: ESOMEPRAZOLE MAGNESIUM
  13. NORCO [Concomitant]
     Active Substance: ACETAMINOPHEN\HYDROCODONE BITARTRATE
  14. NORVASC [Concomitant]
     Active Substance: AMLODIPINE BESYLATE
  15. VITAMIN D [Concomitant]
     Active Substance: CHOLECALCIFEROL
  16. TIZANIDINE. [Concomitant]
     Active Substance: TIZANIDINE
  17. VALACYCLOVIR [Concomitant]
     Active Substance: VALACYCLOVIR HYDROCHLORIDE
  18. XANAX [Concomitant]
     Active Substance: ALPRAZOLAM
  19. ZYRTEC [Concomitant]
     Active Substance: CETIRIZINE HYDROCHLORIDE
  20. INGREZZA [Suspect]
     Active Substance: VALBENAZINE
     Indication: PRODUCT USED FOR UNKNOWN INDICATION
     Route: 048
     Dates: start: 20171215, end: 20171222
  21. CALCIUM [Concomitant]
     Active Substance: CALCIUM
  22. SINGULAIR [Concomitant]
     Active Substance: MONTELUKAST SODIUM
  23. TETRACYCLINE [Concomitant]
     Active Substance: TETRACYCLINE

REACTIONS (2)
  - Loss of consciousness [Unknown]
  - Blood pressure decreased [Unknown]
